FAERS Safety Report 4989055-3 (Version None)
Quarter: 2006Q2

REPORT INFORMATION
  Report Type: 
  Country: None (occurrence: None)
  Receive Date: 20060425
  Receipt Date: 20060407
  Transmission Date: 20061013
  Serious: Yes (Life-Threatening)
  Sender: FDA-Public Use
  Company Number: 224311

PATIENT
  Age: 70 Year
  Sex: Male

DRUGS (4)
  1. AVASTIN [Suspect]
     Indication: METASTATIC RENAL CELL CARCINOMA
     Dosage: 10 MG/KG, INTRAVENOUS
     Route: 042
     Dates: start: 20051123, end: 20060223
  2. PRIMPERAN ELIXIR [Concomitant]
  3. LEVOTHYROXINE SODIUM [Concomitant]
  4. IRRADIATION (RADIATION THERAPY) [Concomitant]

REACTIONS (2)
  - ANAEMIA [None]
  - RECTAL HAEMORRHAGE [None]
